FAERS Safety Report 7760931-1 (Version None)
Quarter: 2011Q3

REPORT INFORMATION
  Report Type: 
  Country: None (occurrence: None)
  Receive Date: 20110919
  Receipt Date: 20110728
  Transmission Date: 20111222
  Serious: Yes (Hospitalization, Other)
  Sender: FDA-Public Use
  Company Number: PHHY2011FR56133

PATIENT
  Sex: Male

DRUGS (13)
  1. PERINDOPRIL ERBUMINE [Concomitant]
     Dosage: 4 MG, UNK
  2. PREDNISOLONE [Concomitant]
     Dosage: 20 MG, PER DAY
     Dates: start: 20110509
  3. ESOMEPRAZOLE SODIUM [Concomitant]
  4. RASILEZ (ALISKIREN) [Concomitant]
     Dosage: 150 MG, UNK
  5. FELODIPINE [Concomitant]
     Dosage: 5 MG, UNK
  6. BUMETANIDE [Concomitant]
     Dosage: 1 MG, UNK
  7. CORDARONE [Concomitant]
     Dosage: 200 MG, UNK
  8. AFINITOR [Suspect]
     Dosage: 5 MG, UNK
     Route: 048
     Dates: start: 20110509
  9. AFINITOR [Suspect]
     Indication: RENAL CANCER METASTATIC
     Dosage: 10 MG, PER DAY
     Route: 048
     Dates: start: 20110324, end: 20110328
  10. AFINITOR [Suspect]
     Dosage: 10 MG, UNK
     Route: 048
     Dates: end: 20110407
  11. POTASSIUM CHLORIDE [Concomitant]
     Dosage: 1000 MG, UNK
  12. ATORVASTATIN CALCIUM [Concomitant]
     Dosage: 20 MG, UNK
  13. BECLOMETHASONE DIPROPIONATE [Concomitant]
     Dosage: 250 UG, UNK

REACTIONS (20)
  - PYREXIA [None]
  - HEART SOUNDS ABNORMAL [None]
  - MITRAL VALVE DISEASE [None]
  - HAEMOGLOBIN DECREASED [None]
  - LUNG DISORDER [None]
  - DYSPNOEA [None]
  - MITRAL VALVE INCOMPETENCE [None]
  - PLATELET COUNT DECREASED [None]
  - LYMPHADENOPATHY [None]
  - TRICUSPID VALVE INCOMPETENCE [None]
  - LYMPHOEDEMA [None]
  - CARDIAC FAILURE [None]
  - CARDIAC MURMUR [None]
  - VENOUS INSUFFICIENCY [None]
  - CREATININE RENAL CLEARANCE DECREASED [None]
  - GENERAL PHYSICAL HEALTH DETERIORATION [None]
  - HYPOALBUMINAEMIA [None]
  - INFLAMMATION [None]
  - C-REACTIVE PROTEIN INCREASED [None]
  - OEDEMA PERIPHERAL [None]
